FAERS Safety Report 6537839-2 (Version None)
Quarter: 2010Q1

REPORT INFORMATION
  Report Type: 
  Country: None (occurrence: None)
  Receive Date: 20100111
  Receipt Date: 20100104
  Transmission Date: 20100710
  Serious: Yes (Hospitalization)
  Sender: FDA-Public Use
  Company Number: 2010SP000378

PATIENT
  Age: 86 Year
  Sex: Female

DRUGS (6)
  1. MIRTAZAPINE [Suspect]
     Indication: DEPRESSION
     Dosage: 15 MG;QD;PO
     Route: 048
     Dates: start: 20091208, end: 20091223
  2. DOMPERIDONE [Concomitant]
  3. SODIUM AZULENE [Concomitant]
  4. SULFONATE/L-GLUTAMINE [Concomitant]
  5. ACETAMINOPHEN [Concomitant]
  6. FLUVOXAMINE MALEATE [Concomitant]

REACTIONS (3)
  - ALTERED STATE OF CONSCIOUSNESS [None]
  - DIZZINESS [None]
  - EPILEPSY [None]
